FAERS Safety Report 18669939 (Version 1)
Quarter: 2020Q4

REPORT INFORMATION
  Report Type: Spontaneous
  Country: US (occurrence: US)
  Receive Date: 20201228
  Receipt Date: 20201228
  Transmission Date: 20210114
  Serious: Yes (Hospitalization, Other)
  Sender: FDA-Public Use
  Company Number: None

PATIENT
  Age: 49 Year
  Sex: Female
  Weight: 98.9 kg

DRUGS (5)
  1. DEXAMETHASONE. [Concomitant]
     Active Substance: DEXAMETHASONE
     Dates: start: 20201211, end: 20201226
  2. CEFTRIZAXONE [Concomitant]
     Dates: start: 20201214, end: 20201218
  3. REMDESIVIR. [Concomitant]
     Active Substance: REMDESIVIR
     Dates: start: 20201212, end: 20201215
  4. PIPERCILLIN-TAZOBACTAM [Concomitant]
     Active Substance: PIPERACILLIN SODIUM\TAZOBACTAM SODIUM
     Dates: start: 20201212, end: 20201215
  5. BARICITINIB. [Suspect]
     Active Substance: BARICITINIB
     Indication: COVID-19
     Route: 048
     Dates: start: 20201212, end: 20201216

REACTIONS (5)
  - Bacterial infection [None]
  - Oxygen saturation decreased [None]
  - Sputum culture positive [None]
  - Transfusion [None]
  - Streptococcus test positive [None]

NARRATIVE: CASE EVENT DATE: 20201215
